FAERS Safety Report 7224583-1 (Version None)
Quarter: 2011Q1

REPORT INFORMATION
  Report Type: 
  Country: None (occurrence: None)
  Receive Date: 20110113
  Receipt Date: 20110107
  Transmission Date: 20110831
  Serious: Yes (Hospitalization)
  Sender: FDA-Public Use
  Company Number: NO-PFIZER INC-2010178123

PATIENT
  Age: 60 Year
  Sex: Female

DRUGS (8)
  1. ARTHROTEC [Concomitant]
     Route: 048
  2. AIROMIR [Concomitant]
     Dosage: 2 INHALATIONS WHEN NECESSARY
     Route: 055
  3. LEVOTHYROXINE SODIUM [Concomitant]
     Dosage: 1 TABLET 4 DAYS A WEEK, 1,5 TABLETS 3 DAYS A WEEK.
     Route: 048
  4. SERETIDE DISKUS [Concomitant]
     Dosage: 50 A?G/2 A?G
     Route: 055
  5. ATACAND [Concomitant]
     Route: 048
  6. LIPITOR [Suspect]
     Indication: HYPERCHOLESTEROLAEMIA
     Route: 048
     Dates: start: 20070101, end: 20101213
  7. ALBYL-E [Concomitant]
     Route: 048
  8. PRILOSEC [Concomitant]
     Route: 048

REACTIONS (4)
  - ARTHRALGIA [None]
  - RENAL FAILURE [None]
  - HEPATITIS TOXIC [None]
  - MYALGIA [None]
